FAERS Safety Report 16551782 (Version 4)
Quarter: 2019Q4

REPORT INFORMATION
  Report Type: Spontaneous
  Country: US (occurrence: US)
  Receive Date: 20190710
  Receipt Date: 20191119
  Transmission Date: 20200122
  Serious: Yes (Other)
  Sender: FDA-Public Use
  Company Number: US-STRONGBRIDGE BIOPHARMA-2019-STR-000175

PATIENT
  Age: 52 Year
  Sex: Female

DRUGS (4)
  1. KEVEYIS [Suspect]
     Active Substance: DICHLORPHENAMIDE
     Indication: FAMILIAL PERIODIC PARALYSIS
     Dosage: 50 MG, BID
     Route: 048
     Dates: start: 20170428
  2. PREDNISONE. [Suspect]
     Active Substance: PREDNISONE
     Indication: PRODUCT USED FOR UNKNOWN INDICATION
  3. CITRATE [Concomitant]
     Active Substance: CITRIC ACID MONOHYDRATE
     Indication: PRODUCT USED FOR UNKNOWN INDICATION
  4. POTASSIUM [Concomitant]
     Active Substance: POTASSIUM
     Indication: RENAL DISORDER

REACTIONS (10)
  - Fatigue [Unknown]
  - Fatigue [Not Recovered/Not Resolved]
  - Asthenia [Not Recovered/Not Resolved]
  - Mydriasis [Unknown]
  - Disease recurrence [Unknown]
  - Product dose omission [Unknown]
  - Disorientation [Unknown]
  - Nephrolithiasis [Not Recovered/Not Resolved]
  - Nephrolithiasis [Unknown]
  - Infection [Unknown]

NARRATIVE: CASE EVENT DATE: 20190620
